FAERS Safety Report 5153288-6 (Version None)
Quarter: 2006Q4

REPORT INFORMATION
  Report Type: 
  Country: None (occurrence: None)
  Receive Date: 20061117
  Receipt Date: 20061116
  Transmission Date: 20070319
  Serious: Yes (Other)
  Sender: FDA-Public Use
  Company Number: US-GLAXOSMITHKLINE-A0627783A

PATIENT
  Age: 37 Year
  Sex: Female

DRUGS (1)
  1. COMMIT [Suspect]
     Indication: SMOKING CESSATION THERAPY
     Dosage: 2MG UNKNOWN
     Route: 002
     Dates: start: 20061101, end: 20061101

REACTIONS (3)
  - ANGINA PECTORIS [None]
  - CHEST DISCOMFORT [None]
  - HEART RATE INCREASED [None]
